FAERS Safety Report 7750286-0 (Version None)
Quarter: 2011Q3

REPORT INFORMATION
  Report Type: 
  Country: None (occurrence: None)
  Receive Date: 20110914
  Receipt Date: 20110901
  Transmission Date: 20111222
  Serious: Yes (Hospitalization, Disabling, Other)
  Sender: FDA-Public Use
  Company Number: US-ELI_LILLY_AND_COMPANY-US201106004731

PATIENT
  Sex: Female
  Weight: 65.76 kg

DRUGS (3)
  1. FORTEO [Suspect]
     Indication: OSTEOPOROSIS
     Dosage: 20 UG, QD
     Route: 065
     Dates: start: 20110217
  2. CALCIUM CARBONATE [Concomitant]
  3. FORTEO [Suspect]
     Dosage: 20 UG, QD
     Route: 065

REACTIONS (14)
  - DEVICE DISLOCATION [None]
  - ARTHROPATHY [None]
  - NERVE INJURY [None]
  - POST PROCEDURAL COMPLICATION [None]
  - FEAR [None]
  - SPINAL FUSION SURGERY [None]
  - MOVEMENT DISORDER [None]
  - PAIN [None]
  - BONE DISORDER [None]
  - HIP FRACTURE [None]
  - PAIN IN EXTREMITY [None]
  - FEELING ABNORMAL [None]
  - BACK PAIN [None]
  - ARTHRALGIA [None]
